FAERS Safety Report 7275661-2 (Version None)
Quarter: 2011Q1

REPORT INFORMATION
  Report Type: 
  Country: None (occurrence: None)
  Receive Date: 20110131
  Receipt Date: 20110120
  Transmission Date: 20110831
  Serious: Yes (Congenital Anomaly)
  Sender: FDA-Public Use
  Company Number: AXC-2011-000031

PATIENT
  Sex: Female

DRUGS (7)
  1. PENTASA [Suspect]
     Indication: DRUG EXPOSURE DURING PREGNANCY
     Dosage: TRANSPLACENTAL
     Route: 064
     Dates: start: 20090223, end: 20090515
  2. PROGRAF [Suspect]
     Indication: DRUG EXPOSURE DURING PREGNANCY
     Dosage: 2.5 G, QD; TRANSPLACENTAL
     Route: 064
     Dates: end: 20090515
  3. ASPEGIC (ACETYLSALICYLIC ACID) POWDER FOR ORAL SUSPENSION [Suspect]
     Indication: DRUG EXPOSURE DURING PREGNANCY
     Dosage: 250 MG QD, TRANSPLACENTAL
     Route: 064
  4. INNOHEP (HEPARIN-FRACTION, SODIUM SALT) SOLUTION FOR INJECTION [Suspect]
     Indication: DRUG EXPOSURE DURING PREGNANCY
     Dosage: 10000IU, QD, TRANSPLACENTAL
     Route: 064
     Dates: start: 20000101
  5. CELLCEPT [Suspect]
     Indication: DRUG EXPOSURE DURING PREGNANCY
     Dosage: 250 MG, BID; TRANSPLACENTAL
     Route: 064
  6. CALTRATE (CALCIUM CARBONATE) UNKNOWN [Suspect]
     Indication: DRUG EXPOSURE DURING PREGNANCY
     Dosage: 1 DF, QD, TRANSPLACENTAL
     Route: 064
     Dates: end: 20090515
  7. DELURSAN (URSODEOXYCHOLIC ACID) TABLET [Suspect]
     Indication: DRUG EXPOSURE DURING PREGNANCY
     Dosage: 200 MG, QID; TRANSPLACENTAL
     Route: 064
     Dates: end: 20090515

REACTIONS (3)
  - MATERNAL DRUGS AFFECTING FOETUS [None]
  - DYSMORPHISM [None]
  - CAESAREAN SECTION [None]
